FAERS Safety Report 8503059-5 (Version None)
Quarter: 2012Q3

REPORT INFORMATION
  Report Type: 
  Country: None (occurrence: None)
  Receive Date: 20120711
  Receipt Date: 20120630
  Transmission Date: 20120928
  Serious: Yes (Other)
  Sender: FDA-Public Use
  Company Number: JP-ELI_LILLY_AND_COMPANY-JP201205007760

PATIENT
  Age: 65 Year
  Sex: Female

DRUGS (1)
  1. FORTEO [Suspect]
     Dosage: UNK
     Route: 058
     Dates: start: 20120518

REACTIONS (7)
  - NECK PAIN [None]
  - BACK PAIN [None]
  - SENSATION OF PRESSURE [None]
  - MUSCLE SPASMS [None]
  - CHEMOTHERAPY [None]
  - MUSCULOSKELETAL PAIN [None]
  - MYALGIA [None]
